FAERS Safety Report 10677604 (Version 3)
Quarter: 2015Q1

REPORT INFORMATION
  Report Type: Report from Study
  Country: ES (occurrence: ES)
  Receive Date: 20141229
  Receipt Date: 20150109
  Transmission Date: 20150720
  Serious: Yes (Hospitalization, Disabling)
  Sender: FDA-Public Use
  Company Number: ES-AMGEN-ESPCT2014100581

PATIENT
  Age: 57 Year
  Sex: Male

DRUGS (3)
  1. CISPLATIN. [Concomitant]
     Active Substance: CISPLATIN
     Indication: OESOPHAGEAL SQUAMOUS CELL CARCINOMA
     Dosage: 128 MG, Q3WK
     Route: 042
     Dates: start: 20141010, end: 20141204
  2. 5-FU                               /00098801/ [Concomitant]
     Active Substance: FLUOROURACIL
     Indication: OESOPHAGEAL SQUAMOUS CELL CARCINOMA
     Dosage: 6400 MG, Q3WK
     Route: 042
     Dates: start: 20141010, end: 20141204
  3. PANITUMUMAB [Suspect]
     Active Substance: PANITUMUMAB
     Indication: OESOPHAGEAL SQUAMOUS CELL CARCINOMA
     Dosage: 517 MG, Q3WK
     Route: 042
     Dates: start: 20141010, end: 20141204

REACTIONS (1)
  - Oesophagobronchial fistula [Not Recovered/Not Resolved]

NARRATIVE: CASE EVENT DATE: 20141110
